FAERS Safety Report 7964927-6 (Version None)
Quarter: 2011Q4

REPORT INFORMATION
  Report Type: 
  Country: None (occurrence: None)
  Receive Date: 20111208
  Receipt Date: 20111208
  Transmission Date: 20120403
  Serious: Yes (Life-Threatening, Hospitalization)
  Sender: FDA-Public Use
  Company Number: None

PATIENT
  Age: 38 Year
  Sex: Male
  Weight: 81.646 kg

DRUGS (1)
  1. BACLOFEN [Suspect]

REACTIONS (6)
  - MEDICAL DEVICE COMPLICATION [None]
  - DRUG WITHDRAWAL SYNDROME [None]
  - HALLUCINATION [None]
  - DEVICE ALARM ISSUE [None]
  - MUSCLE RIGIDITY [None]
  - DEVICE MALFUNCTION [None]
